FAERS Safety Report 20385871 (Version 1)
Quarter: 2022Q1

REPORT INFORMATION
  Report Type: Spontaneous
  Country: US (occurrence: US)
  Receive Date: 20220127
  Receipt Date: 20220127
  Transmission Date: 20220423
  Serious: No
  Sender: FDA-Public Use
  Company Number: US-ALLERGAN-2127681US

PATIENT
  Sex: Female

DRUGS (4)
  1. BOTOX COSMETIC [Suspect]
     Active Substance: ONABOTULINUMTOXINA
     Indication: Skin wrinkling
     Dosage: 15 UNITS, SINGLE
     Dates: start: 20210803, end: 20210803
  2. BOTOX COSMETIC [Suspect]
     Active Substance: ONABOTULINUMTOXINA
     Indication: Skin wrinkling
     Dosage: 12 UNITS, SINGLE
     Dates: start: 20210803, end: 20210803
  3. ZETIA [Concomitant]
     Active Substance: EZETIMIBE
     Indication: Blood cholesterol increased
  4. DESLORATADINE\PSEUDOEPHEDRINE SULFATE [Concomitant]
     Active Substance: DESLORATADINE\PSEUDOEPHEDRINE SULFATE
     Indication: Seasonal allergy

REACTIONS (1)
  - Urticaria [Recovering/Resolving]
